FAERS Safety Report 14654897 (Version 6)
Quarter: 2018Q2

REPORT INFORMATION
  Report Type: Spontaneous
  Country: US (occurrence: US)
  Receive Date: 20180319
  Receipt Date: 20180510
  Transmission Date: 20180711
  Serious: Yes (Hospitalization, Other)
  Sender: FDA-Public Use
  Company Number: US-GLAXOSMITHKLINE-US2018GSK045295

PATIENT
  Age: 73 Year
  Sex: Female

DRUGS (6)
  1. FLOLAN [Suspect]
     Active Substance: EPOPROSTENOL SODIUM
     Indication: PULMONARY HYPERTENSION
     Dosage: 45 DF, CO
     Route: 042
     Dates: start: 20080214
  2. FLOLAN [Suspect]
     Active Substance: EPOPROSTENOL SODIUM
     Dosage: 45 NG/KG/MIN, CO
     Route: 042
  3. FLOLAN [Suspect]
     Active Substance: EPOPROSTENOL SODIUM
     Dosage: UNK
     Route: 042
  4. FLOLAN [Suspect]
     Active Substance: EPOPROSTENOL SODIUM
     Indication: PULMONARY HYPERTENSION
     Dosage: UNK
     Dates: start: 20170607
  5. LETAIRIS [Concomitant]
     Active Substance: AMBRISENTAN
  6. REVATIO [Concomitant]
     Active Substance: SILDENAFIL CITRATE

REACTIONS (10)
  - Emergency care [Unknown]
  - Therapeutic procedure [Unknown]
  - Catheterisation venous [Unknown]
  - Device occlusion [Unknown]
  - Central venous catheterisation [Unknown]
  - Neck pain [Unknown]
  - Device alarm issue [Unknown]
  - Catheter management [Unknown]
  - Complication associated with device [Unknown]
  - Headache [Unknown]

NARRATIVE: CASE EVENT DATE: 201803
